FAERS Safety Report 14656149 (Version 2)
Quarter: 2018Q2

REPORT INFORMATION
  Report Type: Spontaneous
  Country: US (occurrence: US)
  Receive Date: 20180319
  Receipt Date: 20180509
  Transmission Date: 20180711
  Serious: No
  Sender: FDA-Public Use
  Company Number: US-ARALEZ PHARMACEUTICALS R+D INC.-2018-ARA-000625

PATIENT
  Age: 48 Year
  Sex: Female
  Weight: 66.21 kg

DRUGS (1)
  1. TOPROL XL [Suspect]
     Active Substance: METOPROLOL SUCCINATE
     Indication: PRODUCT USED FOR UNKNOWN INDICATION
     Dosage: 12.5 MG, ONCE OR TWICE PER DAY
     Dates: start: 20180311, end: 20180315

REACTIONS (2)
  - Product quality issue [Unknown]
  - Chest pain [Unknown]

NARRATIVE: CASE EVENT DATE: 20180311
